FAERS Safety Report 24044360 (Version 3)
Quarter: 2024Q3

REPORT INFORMATION
  Report Type: Spontaneous
  Country: US (occurrence: US)
  Receive Date: 20240703
  Receipt Date: 20240812
  Transmission Date: 20241017
  Serious: Yes (Other)
  Sender: BRISTOL MYERS SQUIBB
  Company Number: US-BRISTOL-MYERS SQUIBB COMPANY-2024-106109

PATIENT
  Age: 56 Year
  Sex: Female

DRUGS (2)
  1. SPRYCEL [Suspect]
     Active Substance: DASATINIB
     Indication: Chronic myeloid leukaemia
     Route: 048
     Dates: start: 202406
  2. SPRYCEL [Suspect]
     Active Substance: DASATINIB
     Route: 048
     Dates: start: 202406

REACTIONS (9)
  - General physical health deterioration [Unknown]
  - Fatigue [Unknown]
  - Asthenia [Unknown]
  - Fall [Unknown]
  - Nausea [Unknown]
  - Vomiting [Unknown]
  - Weight increased [Unknown]
  - Cardiac failure [Unknown]
  - Vertigo [Unknown]

NARRATIVE: CASE EVENT DATE: 20240701
